FAERS Safety Report 10451262 (Version 16)
Quarter: 2020Q1

REPORT INFORMATION
  Report Type: Spontaneous
  Country: US (occurrence: US)
  Receive Date: 20140912
  Receipt Date: 20200226
  Transmission Date: 20200409
  Serious: Yes (Other)
  Sender: FDA-Public Use
  Company Number: US-PFIZER INC-2014253095

PATIENT
  Age: 73 Year
  Sex: Female
  Weight: 77 kg

DRUGS (39)
  1. LYRICA [Suspect]
     Active Substance: PREGABALIN
     Dosage: 100 MG, FOUR TIMES A DAY
     Route: 048
  2. GAS-X [Concomitant]
     Active Substance: DIMETHICONE
     Indication: FLATULENCE
     Dosage: 125 MG, UNK
  3. FLAXSEED [Concomitant]
     Active Substance: FLAX SEED
     Indication: ROUTINE HEALTH MAINTENANCE
     Dosage: 1400 MG, 1X/DAY
     Dates: start: 2013
  4. FOLIC ACID. [Concomitant]
     Active Substance: FOLIC ACID
     Indication: ROUTINE HEALTH MAINTENANCE
     Dosage: 400 MG, 1X/DAY (AFTER LUNCH)
     Dates: start: 2012
  5. NYSTATIN. [Concomitant]
     Active Substance: NYSTATIN
     Indication: STOMATITIS
     Dosage: 100000 IU, UNK
  6. WARFARIN [Concomitant]
     Active Substance: WARFARIN
     Dosage: UNK
  7. CALCIUM +D [CALCIUM;ERGOCALCIFEROL] [Concomitant]
     Indication: BONE DISORDER
     Dosage: 600 MG, 2X/DAY
     Dates: start: 2000
  8. PROBIOTICS [Concomitant]
     Active Substance: PROBIOTICS NOS
     Indication: DYSPEPSIA
     Dosage: UNK, 1X/DAY (AFTER LUNCH)
     Dates: start: 2012
  9. EQUALACTIN [Concomitant]
     Indication: IRRITABLE BOWEL SYNDROME
     Dosage: 2 DF, 1X/DAY (MORNING)
     Dates: start: 2013
  10. BACTRIM [Concomitant]
     Active Substance: SULFAMETHOXAZOLE\TRIMETHOPRIM
     Dosage: UNK
  11. PREDNISONE. [Concomitant]
     Active Substance: PREDNISONE
     Dosage: UNK
  12. LIPITOR [Concomitant]
     Active Substance: ATORVASTATIN CALCIUM
     Dosage: UNK
  13. LYRICA [Suspect]
     Active Substance: PREGABALIN
     Indication: FIBROMYALGIA
     Dosage: 100 MG, 3X/DAY
     Route: 048
     Dates: start: 2000
  14. PANTOPRAZOLE [Concomitant]
     Active Substance: PANTOPRAZOLE
     Indication: GASTROOESOPHAGEAL REFLUX DISEASE
     Dosage: UNK, 2X/DAY
     Dates: start: 2012
  15. RESTASIS [Concomitant]
     Active Substance: CYCLOSPORINE
     Indication: DRY EYE
     Dosage: 2 GTT, 2X/DAY (1 DROP EACH EYE AT THE MORNING/EVENING)
     Route: 047
     Dates: start: 2000
  16. GLUCOSAMINE SULFATE [Concomitant]
     Active Substance: GLUCOSAMINE SULFATE
     Indication: ROUTINE HEALTH MAINTENANCE
     Dosage: 1000 MG, 1X/DAY
  17. LYRICA [Suspect]
     Active Substance: PREGABALIN
     Indication: NEUROPATHY PERIPHERAL
     Dosage: 100 MG, 3X/DAY (MORNING/NOON/NIGHT)
     Route: 048
  18. LOSARTAN. [Concomitant]
     Active Substance: LOSARTAN
     Indication: HYPERTENSION
     Dosage: UNK
     Dates: start: 2013
  19. TYLENOL [Concomitant]
     Active Substance: ACETAMINOPHEN
     Indication: HEADACHE
     Dosage: 500 MG, AS NEEDED
     Dates: start: 2000
  20. GLUCOSAMINE SULFATE [Concomitant]
     Active Substance: GLUCOSAMINE SULFATE
     Dosage: 2000 MG, 1X/DAY (AFTER LUNCH)
  21. PANTOPRAZOLE [Concomitant]
     Active Substance: PANTOPRAZOLE
     Indication: DYSPEPSIA
  22. OXYBUTYNIN ER [Concomitant]
     Active Substance: OXYBUTYNIN
     Indication: BLADDER SPASM
     Dosage: 10 MG, 1X/DAY (EVENING)
  23. SYSTANE ULTRA [Concomitant]
     Active Substance: POLYETHYLENE GLYCOL 400\PROPYLENE GLYCOL
     Indication: DRY EYE
     Dosage: 2 GTT, 4X/DAY (1 DROP EACH EYE, 4 TIMES A DAY)
     Route: 047
     Dates: start: 2000
  24. CARBAMAZEPINE. [Concomitant]
     Active Substance: CARBAMAZEPINE
     Dosage: UNK
  25. AMOXILIN [Concomitant]
     Active Substance: AMOXICILLIN
     Dosage: UNK
  26. DICYCLOMINE [Concomitant]
     Active Substance: DICYCLOMINE HYDROCHLORIDE
     Indication: GASTROINTESTINAL PAIN
     Dosage: 20 MG, EVERY 6 HOURS
  27. BLINK GEL TEARS [Concomitant]
     Active Substance: POLYETHYLENE GLYCOL 400
     Indication: DRY EYE
     Dosage: 2 GTT (ONE DROP PER EYE), 4X/DAY
     Route: 047
  28. COUMADIN [Concomitant]
     Active Substance: WARFARIN SODIUM
     Indication: ANTICOAGULANT THERAPY
     Dosage: UNK, ALTERNATE DAY
     Dates: start: 2009
  29. SUCRALFATE. [Concomitant]
     Active Substance: SUCRALFATE
     Indication: PROPHYLAXIS AGAINST GASTROINTESTINAL ULCER
     Dosage: 1 MG, 3X/DAY (BEFORE MEALS)
     Dates: start: 2013
  30. SYMBICORT [Concomitant]
     Active Substance: BUDESONIDE\FORMOTEROL FUMARATE DIHYDRATE
     Indication: ASTHMA
     Dosage: 2 DF, DAILY
  31. BYSTOLIC [Concomitant]
     Active Substance: NEBIVOLOL HYDROCHLORIDE
     Indication: HYPERTENSION
     Dosage: 5 MG, 1X/DAY (MORNING)
     Dates: start: 2013
  32. ATORVASTATIN [Concomitant]
     Active Substance: ATORVASTATIN
     Indication: BLOOD CHOLESTEROL ABNORMAL
     Dosage: 10 MG, 1X/DAY (EVENING)
     Dates: start: 2010
  33. LEVAQUIN [Concomitant]
     Active Substance: LEVOFLOXACIN
     Dosage: UNK
  34. DOXICYCLINE [Concomitant]
     Dosage: UNK
  35. CYCLOBENZAPRINE. [Concomitant]
     Active Substance: CYCLOBENZAPRINE
     Indication: MUSCLE SPASMS
     Dosage: 10 MG, AS NEEDED
  36. HYOSCYAMINE. [Concomitant]
     Active Substance: HYOSCYAMINE
     Indication: GASTROINTESTINAL PAIN
     Dosage: 0.375 MG, AS NEEDED
     Dates: start: 2015
  37. TIZANIDINE. [Concomitant]
     Active Substance: TIZANIDINE
     Indication: MUSCLE SPASMS
     Dosage: 4 MG, AS NEEDED
     Dates: start: 2013
  38. TYLENOL [Concomitant]
     Active Substance: ACETAMINOPHEN
     Indication: BACK PAIN
  39. VITAMIN B COMPLEX [Concomitant]
     Active Substance: CYANOCOBALAMIN\DEXPANTHENOL\NIACINAMIDE\PYRIDOXINE HYDROCHLORIDE\RIBOFLAVIN 5^-PHOSPHATE SODIUM\THIAMINE HYDROCHLORIDE\VITAMIN B COMPLEX
     Indication: VITAMIN SUPPLEMENTATION
     Dosage: 1 DF, 1X/DAY (AFTER LUNCH)
     Dates: start: 2014

REACTIONS (2)
  - Deafness [Unknown]
  - Rash [Unknown]
